FAERS Safety Report 7453346-7 (Version None)
Quarter: 2011Q2

REPORT INFORMATION
  Report Type: 
  Country: None (occurrence: None)
  Receive Date: 20110502
  Receipt Date: 20110419
  Transmission Date: 20111010
  Serious: Yes (Hospitalization, Other)
  Sender: FDA-Public Use
  Company Number: PHHY2011FR32831

PATIENT
  Age: 62 Year
  Sex: Male

DRUGS (4)
  1. EVEROLIMUS [Suspect]
     Dosage: 10 MG, QD
     Dates: start: 20050305
  2. MANIDIPINE [Concomitant]
  3. NADROPARIN CALCIUM [Concomitant]
  4. LEVOTHYROXINE SODIUM [Concomitant]

REACTIONS (10)
  - RALES [None]
  - CHOLESTASIS [None]
  - HEPATIC ENZYME INCREASED [None]
  - SINUSITIS [None]
  - LUNG INFILTRATION [None]
  - BRONCHIAL HAEMORRHAGE [None]
  - PYREXIA [None]
  - ALVEOLITIS ALLERGIC [None]
  - DYSPNOEA [None]
  - HYPOVENTILATION [None]
